FAERS Safety Report 6154298-2 (Version None)
Quarter: 2009Q2

REPORT INFORMATION
  Report Type: 
  Country: None (occurrence: None)
  Receive Date: 20090410
  Receipt Date: 20090326
  Transmission Date: 20091009
  Serious: Yes (Death)
  Sender: FDA-Public Use
  Company Number: 2009-193333-NL

PATIENT
  Age: 44 Year
  Sex: Male

DRUGS (9)
  1. DANAPAROID SODIUM [Suspect]
     Indication: THROMBOSIS PROPHYLAXIS
     Dosage: 750 IU TW
     Dates: start: 20080317, end: 20090317
  2. CALCITRIOL [Concomitant]
  3. CALCIUM CARBONATE [Concomitant]
  4. MYLANTA PLUS [Concomitant]
  5. PANTOPRAZOLE SODIUM [Concomitant]
  6. CITALOPRAM HYDROBROMIDE [Concomitant]
  7. FOLIC ACID [Concomitant]
  8. ASCORBIC ACID [Concomitant]
  9. VITAMIN B COMPLEX CAP [Concomitant]

REACTIONS (3)
  - HAEMODIALYSIS [None]
  - PNEUMONIA [None]
  - SEPTIC SHOCK [None]
